FAERS Safety Report 5018474-4 (Version None)
Quarter: 2006Q2

REPORT INFORMATION
  Report Type: 
  Country: None (occurrence: None)
  Receive Date: 20060605
  Receipt Date: 20060531
  Transmission Date: 20061013
  Serious: Yes (Hospitalization, Other)
  Sender: FDA-Public Use
  Company Number: TR-BOEHRINGER INGELHEIM PHARMACEUTICALS, INC.-2006-DE-02825GD

PATIENT
  Sex: Male

DRUGS (4)
  1. ACETYLSALICYLIC ACID SRT [Suspect]
     Route: 048
  2. ACETYLSALICYLIC ACID SRT [Suspect]
  3. MELOXICAM [Suspect]
     Route: 048
  4. PHENYRAMIDOL HYDROCHLORIDE [Suspect]
     Route: 048

REACTIONS (7)
  - ANAPHYLACTIC REACTION [None]
  - CONDITION AGGRAVATED [None]
  - DRUG HYPERSENSITIVITY [None]
  - FOOD INTERACTION [None]
  - LARYNGEAL OEDEMA [None]
  - URTICARIA [None]
  - URTICARIA GENERALISED [None]
